FAERS Safety Report 4699833-6 (Version None)
Quarter: 2005Q2

REPORT INFORMATION
  Report Type: 
  Country: None (occurrence: None)
  Receive Date: 20050623
  Receipt Date: 20050608
  Transmission Date: 20051028
  Serious: Yes (Other)
  Sender: FDA-Public Use
  Company Number: 200511120BWH

PATIENT
  Age: 37 Year
  Sex: Female

DRUGS (2)
  1. AVELOX [Suspect]
     Indication: SINUSITIS
     Dosage: 400 MG, QD, ORAL
     Route: 048
     Dates: start: 20000331, end: 20000402
  2. ELMIRON [Concomitant]

REACTIONS (11)
  - AMNESIA [None]
  - CONFUSIONAL STATE [None]
  - DIARRHOEA [None]
  - DIZZINESS [None]
  - IMPAIRED WORK ABILITY [None]
  - INJURY [None]
  - NAUSEA [None]
  - NERVOUS SYSTEM DISORDER [None]
  - PRURITUS [None]
  - RASH [None]
  - SYNCOPE [None]
